FAERS Safety Report 9264051 (Version 1)
Quarter: 2013Q2

REPORT INFORMATION
  Report Type: Spontaneous
  Country: IL (occurrence: IL)
  Receive Date: 20130430
  Receipt Date: 20130430
  Transmission Date: 20140414
  Serious: Yes (Hospitalization)
  Sender: FDA-Public Use
  Company Number: IL-ABBOTT-12P-082-0916571-00

PATIENT
  Sex: Male
  Weight: 41 kg

DRUGS (6)
  1. HUMIRA 40 MG/ 0.8 ML PRE-FILLED SYRINGE [Suspect]
     Indication: CROHN^S DISEASE
     Route: 058
     Dates: start: 201110
  2. HUMIRA [Suspect]
     Indication: CROHN^S DISEASE
     Dates: start: 20130213
  3. HUMIRA [Suspect]
     Route: 058
     Dates: start: 20130407, end: 20130407
  4. HUMIRA [Suspect]
     Route: 058
  5. MTX [Concomitant]
     Indication: CROHN^S DISEASE
  6. VITAMINS [Concomitant]
     Indication: PRODUCT USED FOR UNKNOWN INDICATION

REACTIONS (7)
  - Pyrexia [Unknown]
  - Crohn^s disease [Unknown]
  - Injection site swelling [Recovering/Resolving]
  - Blood albumin abnormal [Not Recovered/Not Resolved]
  - C-reactive protein increased [Unknown]
  - Hepatic enzyme increased [Not Recovered/Not Resolved]
  - Red blood cell sedimentation rate increased [Unknown]
